FAERS Safety Report 21530845 (Version 1)
Quarter: 2022Q4

REPORT INFORMATION
  Report Type: Spontaneous
  Country: US (occurrence: None)
  Receive Date: 20221030
  Receipt Date: 20221030
  Transmission Date: 20230113
  Serious: No
  Sender: FDA-Public Use
  Company Number: None

PATIENT
  Age: 68 Year
  Sex: Female

DRUGS (22)
  1. MONISTAT 3 [Suspect]
     Active Substance: MICONAZOLE NITRATE
     Indication: Fungal infection
     Dosage: OTHER QUANTITY : 1 SUPPOSITORY(IES);?FREQUENCY : AT BEDTIME;?
     Route: 067
     Dates: start: 20221030, end: 20221030
  2. AMITRIPTYLINE [Concomitant]
     Active Substance: AMITRIPTYLINE
  3. PROPRANOLOL [Concomitant]
     Active Substance: PROPRANOLOL HYDROCHLORIDE
  4. ENALAAPRIL [Concomitant]
  5. ATVORSTATIN [Concomitant]
  6. DIAZEPAM [Concomitant]
     Active Substance: DIAZEPAM
  7. TRAZODONE [Concomitant]
     Active Substance: TRAZODONE HYDROCHLORIDE
  8. TIZANIDINE [Concomitant]
     Active Substance: TIZANIDINE
  9. DLUOXETINE [Concomitant]
  10. LAMOTRIGINE [Concomitant]
     Active Substance: LAMOTRIGINE
  11. ROPINIROLE [Concomitant]
     Active Substance: ROPINIROLE
  12. MELOXICAM [Concomitant]
     Active Substance: MELOXICAM
  13. SYNTHROID [Concomitant]
     Active Substance: LEVOTHYROXINE SODIUM
  14. AMLODIPINE [Concomitant]
     Active Substance: AMLODIPINE BESYLATE
  15. PROMETHAZINE [Concomitant]
     Active Substance: PROMETHAZINE HYDROCHLORIDE
  16. OXYCODONE [Concomitant]
     Active Substance: OXYCODONE
  17. POLYETHETHYLENE GLYCOL [Concomitant]
  18. MALATONIN [Concomitant]
  19. VITAMIN D [Concomitant]
     Active Substance: VITAMIN D NOS
  20. VITAMIN B COMPLEX [Concomitant]
     Active Substance: CYANOCOBALAMIN\DEXPANTHENOL\NIACINAMIDE\PYRIDOXINE HYDROCHLORIDE\RIBOFLAVIN 5^-PHOSPHATE SODIUM\THIA
  21. APPLE CODER GUMMIES [Concomitant]
  22. NAIL AND HAIR GUMMIES [Concomitant]

REACTIONS (2)
  - Abdominal pain [None]
  - Vulvovaginal burning sensation [None]

NARRATIVE: CASE EVENT DATE: 20221030
